FAERS Safety Report 4331497-3 (Version None)
Quarter: 2004Q1

REPORT INFORMATION
  Report Type: 
  Country: None (occurrence: None)
  Receive Date: 20040329
  Receipt Date: 20040316
  Transmission Date: 20041129
  Serious: Yes (Hospitalization)
  Sender: FDA-Public Use
  Company Number: US063837

PATIENT
  Age: 39 Year
  Sex: Male

DRUGS (7)
  1. ENBREL [Suspect]
     Indication: RHEUMATOID ARTHRITIS
     Dosage: 25 MG, 2 IN 1 WEEKS, SC
     Route: 058
     Dates: start: 20021111, end: 20031119
  2. PREDNISONE [Concomitant]
  3. ROFECOXIB [Concomitant]
  4. DIPHENHYDRAMINE HCL [Concomitant]
  5. IBUPROFEN [Concomitant]
  6. VICODIN [Concomitant]
  7. COUGH SYRUP [Concomitant]

REACTIONS (13)
  - AORTIC VALVE INCOMPETENCE [None]
  - COUGH [None]
  - DYSPNOEA [None]
  - HEADACHE [None]
  - HYPOXIA [None]
  - LUNG INFILTRATION [None]
  - MARKEDLY REDUCED DIETARY INTAKE [None]
  - PERICARDIAL EFFUSION [None]
  - PLEURAL EFFUSION [None]
  - PULMONARY HYPERTENSION [None]
  - SKIN TEST POSITIVE [None]
  - SYSTEMIC LUPUS ERYTHEMATOSUS [None]
  - VENTRICULAR HYPERTROPHY [None]
